FAERS Safety Report 21960472 (Version 1)
Quarter: 2023Q1

REPORT INFORMATION
  Report Type: Spontaneous
  Country: US (occurrence: None)
  Receive Date: 20230207
  Receipt Date: 20230207
  Transmission Date: 20230417
  Serious: No
  Sender: FDA-Public Use
  Company Number: 2023A030822

PATIENT
  Sex: Male
  Weight: 103.9 kg

DRUGS (3)
  1. SEROQUEL XR [Suspect]
     Active Substance: QUETIAPINE FUMARATE
     Indication: Bipolar disorder
     Route: 048
     Dates: start: 202012, end: 202205
  2. SEROQUEL XR [Suspect]
     Active Substance: QUETIAPINE FUMARATE
     Indication: Schizophrenia
     Route: 048
     Dates: start: 202012, end: 202205
  3. SEROQUEL XR [Suspect]
     Active Substance: QUETIAPINE FUMARATE
     Indication: Sleep deficit
     Route: 048
     Dates: start: 202012, end: 202205

REACTIONS (7)
  - Insomnia [Unknown]
  - Neck pain [Unknown]
  - Pain [Unknown]
  - Asthenia [Unknown]
  - Dyskinesia [Unknown]
  - Torticollis [Unknown]
  - Off label use [Unknown]
